FAERS Safety Report 21494329 (Version 1)
Quarter: 2022Q4

REPORT INFORMATION
  Report Type: Report from Study
  Country: TW (occurrence: TW)
  Receive Date: 20221021
  Receipt Date: 20221021
  Transmission Date: 20230113
  Serious: Yes (Death, Hospitalization, Other)
  Sender: FDA-Public Use
  Company Number: TW-BoehringerIngelheim-2022-BI-181938

PATIENT
  Age: 49 Year
  Sex: Male
  Weight: 54 kg

DRUGS (33)
  1. AFATINIB [Suspect]
     Active Substance: AFATINIB
     Indication: Oesophageal squamous cell carcinoma
     Route: 048
     Dates: start: 20220630, end: 20220714
  2. AFATINIB [Suspect]
     Active Substance: AFATINIB
     Route: 048
     Dates: start: 20220901, end: 20220906
  3. EZABENLIMAB [Suspect]
     Active Substance: EZABENLIMAB
     Indication: Oesophageal squamous cell carcinoma
     Route: 042
     Dates: start: 20220630, end: 20220630
  4. EZABENLIMAB [Suspect]
     Active Substance: EZABENLIMAB
     Route: 042
     Dates: start: 20220901, end: 20220901
  5. TENOFOVIR ALAFENAMIDE [Concomitant]
     Active Substance: TENOFOVIR ALAFENAMIDE
     Indication: Viral hepatitis carrier
     Route: 048
     Dates: start: 20211013
  6. BROTIZOLAM [Concomitant]
     Active Substance: BROTIZOLAM
     Indication: Insomnia
     Route: 048
     Dates: start: 20211229
  7. BROTIZOLAM [Concomitant]
     Active Substance: BROTIZOLAM
     Route: 048
     Dates: start: 20211229, end: 20221007
  8. BACLOFEN [Concomitant]
     Active Substance: BACLOFEN
     Indication: Insomnia
     Route: 048
     Dates: start: 20220422, end: 20221007
  9. CELECOXIB [Concomitant]
     Active Substance: CELECOXIB
     Indication: Chest pain
     Route: 048
     Dates: start: 20220630, end: 20220906
  10. Thiamine TTFD [Concomitant]
     Indication: Vitamin supplementation
     Route: 048
     Dates: start: 20220630
  11. ZINC GLUCONATE [Concomitant]
     Active Substance: ZINC GLUCONATE
     Indication: Mineral supplementation
     Route: 048
     Dates: start: 20220630, end: 20220906
  12. ZINC GLUCONATE [Concomitant]
     Active Substance: ZINC GLUCONATE
     Route: 048
     Dates: start: 20220914, end: 20221007
  13. CODEINE [Concomitant]
     Active Substance: CODEINE
     Indication: Cough
     Route: 048
     Dates: start: 20220630, end: 20220831
  14. MORPHINE SULFATE [Concomitant]
     Active Substance: MORPHINE SULFATE
     Indication: Chest pain
     Route: 048
     Dates: start: 20220630, end: 20220906
  15. MORPHINE SULFATE [Concomitant]
     Active Substance: MORPHINE SULFATE
     Indication: Pain
     Route: 048
     Dates: start: 20220914, end: 20221007
  16. PREGABALIN [Concomitant]
     Active Substance: PREGABALIN
     Indication: Chest pain
     Route: 048
     Dates: start: 20220630
  17. PREGABALIN [Concomitant]
     Active Substance: PREGABALIN
     Indication: Pain
     Route: 048
     Dates: start: 20220918, end: 20221007
  18. PYRIDOXINE [Concomitant]
     Active Substance: PYRIDOXINE
     Indication: Vitamin supplementation
     Route: 048
  19. URSODIOL [Concomitant]
     Active Substance: URSODIOL
     Indication: Hepatic enzyme increased
     Route: 048
     Dates: start: 20220630
  20. POTASSIUM GLUCONATE [Concomitant]
     Active Substance: POTASSIUM GLUCONATE
     Indication: Hypokalaemia
     Route: 048
     Dates: start: 20220713
  21. POTASSIUM GLUCONATE [Concomitant]
     Active Substance: POTASSIUM GLUCONATE
     Dates: start: 20220907, end: 20220909
  22. TRANEXAMIC ACID [Concomitant]
     Active Substance: TRANEXAMIC ACID
     Indication: Prophylaxis
     Dosage: IN VITRO DIAGNOSTICS (IVD)
     Route: 042
     Dates: start: 20220713, end: 20220713
  23. ESOMEPRAZOLE [Concomitant]
     Active Substance: ESOMEPRAZOLE
     Indication: Prophylaxis
     Route: 042
     Dates: start: 20220713
  24. ESOMEPRAZOLE [Concomitant]
     Active Substance: ESOMEPRAZOLE
     Indication: Stress ulcer
     Dates: start: 20220907, end: 20220913
  25. ESOMEPRAZOLE [Concomitant]
     Active Substance: ESOMEPRAZOLE
     Route: 048
     Dates: start: 20220914, end: 20221020
  26. CEFTRIAXONE [Concomitant]
     Active Substance: CEFTRIAXONE
     Indication: Prophylaxis
     Dosage: IVD
     Route: 042
     Dates: start: 20220713, end: 20220713
  27. TENOFOVIR ALAFENAMIDE [Concomitant]
     Active Substance: TENOFOVIR ALAFENAMIDE
     Indication: Viral hepatitis carrier
     Route: 048
     Dates: start: 20211013, end: 20220906
  28. TENOFOVIR ALAFENAMIDE [Concomitant]
     Active Substance: TENOFOVIR ALAFENAMIDE
     Dates: start: 20220908, end: 20221007
  29. FAMOTIDINE [Concomitant]
     Active Substance: FAMOTIDINE
     Indication: Chest pain
     Route: 048
     Dates: start: 20220825, end: 20220906
  30. FAMOTIDINE [Concomitant]
     Active Substance: FAMOTIDINE
     Indication: Stress ulcer
     Dates: start: 20220920, end: 20221006
  31. MORPHINE [Concomitant]
     Active Substance: MORPHINE
     Indication: Chest pain
     Dosage: IVP
     Route: 042
     Dates: start: 20220906, end: 20220906
  32. MORPHINE [Concomitant]
     Active Substance: MORPHINE
     Indication: Pain
     Route: 058
     Dates: start: 20221007, end: 20221007
  33. MORPHINE [Concomitant]
     Active Substance: MORPHINE
     Route: 058
     Dates: start: 20221008, end: 20221008

REACTIONS (3)
  - Malignant neoplasm progression [Fatal]
  - Pleural effusion [Recovered/Resolved]
  - Pneumonitis [Recovered/Resolved]

NARRATIVE: CASE EVENT DATE: 20220713
